FAERS Safety Report 16852799 (Version 1)
Quarter: 2019Q3

REPORT INFORMATION
  Report Type: Spontaneous
  Country: US (occurrence: US)
  Receive Date: 20190925
  Receipt Date: 20190925
  Transmission Date: 20191005
  Serious: Yes (Hospitalization)
  Sender: FDA-Public Use
  Company Number: US-TEVA-2019-US-1112305

PATIENT
  Age: 67 Year
  Sex: Male

DRUGS (8)
  1. SEVOFLURANE. [Interacting]
     Active Substance: SEVOFLURANE
     Indication: GENERAL ANAESTHESIA
     Route: 065
  2. HEPARIN [Suspect]
     Active Substance: HEPARIN SODIUM
     Indication: ANTICOAGULANT THERAPY
     Route: 065
  3. METOPROLOL SUCCINATE. [Concomitant]
     Active Substance: METOPROLOL SUCCINATE
     Indication: HYPERTENSION
     Route: 065
  4. PROTAMINE [Suspect]
     Active Substance: PROTAMINE
     Indication: PROCOAGULANT THERAPY
     Route: 050
  5. LOSARTAN. [Suspect]
     Active Substance: LOSARTAN
     Indication: HYPERTENSION
     Dosage: 25 MILLIGRAM DAILY;
     Route: 065
  6. PROPOFOL. [Interacting]
     Active Substance: PROPOFOL
     Indication: GENERAL ANAESTHESIA
     Route: 065
  7. 70/30 INSULIN [Suspect]
     Active Substance: INSULIN NOS
     Route: 065
  8. CISATRACURIUM. [Interacting]
     Active Substance: CISATRACURIUM
     Indication: GENERAL ANAESTHESIA
     Route: 065

REACTIONS (3)
  - Drug interaction [Recovered/Resolved]
  - Catheter site haemorrhage [Recovered/Resolved]
  - Vasoplegia syndrome [Recovered/Resolved]
